FAERS Safety Report 7809208-6 (Version None)
Quarter: 2011Q4

REPORT INFORMATION
  Report Type: 
  Country: None (occurrence: None)
  Receive Date: 20111012
  Receipt Date: 20110928
  Transmission Date: 20120403
  Serious: Yes (Hospitalization)
  Sender: FDA-Public Use
  Company Number: SE-PFIZER INC-2011242344

PATIENT
  Sex: Female

DRUGS (2)
  1. DRONEDARONE HCL [Suspect]
  2. CORDARONE [Suspect]
     Dosage: 200 MG

REACTIONS (2)
  - CARDIAC ARREST [None]
  - TORSADE DE POINTES [None]
